FAERS Safety Report 11413748 (Version 4)
Quarter: 2015Q4

REPORT INFORMATION
  Report Type: Report from Study
  Country: JP (occurrence: JP)
  Receive Date: 20150824
  Receipt Date: 20151202
  Transmission Date: 20160304
  Serious: Yes (Death, Hospitalization)
  Sender: FDA-Public Use
  Company Number: JP-EISAI MEDICAL RESEARCH-EC-2015-009793

PATIENT
  Age: 52 Year
  Sex: Male
  Weight: 116 kg

DRUGS (2)
  1. LEVOTHYROXINE SODIUM HYDRATE [Concomitant]
  2. LENVIMA [Suspect]
     Active Substance: LENVATINIB
     Indication: ANAPLASTIC THYROID CANCER
     Route: 048
     Dates: start: 20150612, end: 20150810

REACTIONS (2)
  - Hypercalcaemia [Not Recovered/Not Resolved]
  - Malignant neoplasm progression [Fatal]

NARRATIVE: CASE EVENT DATE: 20150831
